FAERS Safety Report 7316326-8 (Version None)
Quarter: 2011Q1

REPORT INFORMATION
  Report Type: 
  Country: None (occurrence: None)
  Receive Date: 20110225
  Receipt Date: 20110217
  Transmission Date: 20110831
  Serious: Yes (Hospitalization)
  Sender: FDA-Public Use
  Company Number: US-US-EMD SERONO, INC.-7026264

PATIENT
  Sex: Female

DRUGS (3)
  1. REBIF [Suspect]
     Route: 058
     Dates: start: 20101218
  2. REBIF [Suspect]
     Route: 058
  3. REBIF [Suspect]
     Indication: PRODUCT USED FOR UNKNOWN INDICATION
     Dates: start: 20090331, end: 20101001

REACTIONS (5)
  - COGNITIVE DISORDER [None]
  - CONVULSION [None]
  - HEADACHE [None]
  - TREATMENT NONCOMPLIANCE [None]
  - MEMORY IMPAIRMENT [None]
